FAERS Safety Report 6138436-3 (Version None)
Quarter: 2009Q1

REPORT INFORMATION
  Report Type: 
  Country: None (occurrence: None)
  Receive Date: 20090327
  Receipt Date: 20090327
  Transmission Date: 20090719
  Serious: Yes (Hospitalization)
  Sender: FDA-Public Use
  Company Number: None

PATIENT
  Sex: Female
  Weight: 88.9 kg

DRUGS (1)
  1. CYTARABINE [Suspect]
     Dosage: 37080 MG
     Dates: end: 20040913

REACTIONS (2)
  - DEHYDRATION [None]
  - SYNCOPE [None]
